FAERS Safety Report 7793430-1 (Version None)
Quarter: 2011Q4

REPORT INFORMATION
  Report Type: 
  Country: None (occurrence: None)
  Receive Date: 20111003
  Receipt Date: 20110926
  Transmission Date: 20120403
  Serious: Yes (Hospitalization)
  Sender: FDA-Public Use
  Company Number: PHHY2011IT81729

PATIENT
  Sex: Female

DRUGS (2)
  1. ANTICOAGULANTS [Concomitant]
     Dosage: UNK UKN, UNK
     Route: 048
  2. CHLORMADINONE+ETHINYLESTRADIOL (EVE) [Suspect]
     Indication: ORAL CONTRACEPTION
     Dosage: 2 MG+0.03 MG, 1 DF, UNK
     Route: 048
     Dates: start: 20110427, end: 20110627

REACTIONS (2)
  - PULMONARY INFARCTION [None]
  - PULMONARY EMBOLISM [None]
